FAERS Safety Report 16666738 (Version 1)
Quarter: 2019Q3

REPORT INFORMATION
  Report Type: Spontaneous
  Country: US (occurrence: US)
  Receive Date: 20190805
  Receipt Date: 20190805
  Transmission Date: 20191004
  Serious: Yes (Other)
  Sender: FDA-Public Use
  Company Number: US-ACCORD-103197

PATIENT
  Age: 44 Year
  Sex: Female
  Weight: 65.32 kg

DRUGS (11)
  1. HYDROCORTISONE. [Concomitant]
     Active Substance: HYDROCORTISONE
  2. PERTUZUMAB. [Suspect]
     Active Substance: PERTUZUMAB
     Indication: BREAST CANCER
     Dosage: EVERY THREE WEEKS
     Dates: start: 20120416, end: 20140612
  3. PROMETHAZINE [Concomitant]
     Active Substance: PROMETHAZINE HYDROCHLORIDE
  4. CYMBALTA [Concomitant]
     Active Substance: DULOXETINE HYDROCHLORIDE
  5. DOCETAXEL. [Suspect]
     Active Substance: DOCETAXEL
     Indication: BREAST CANCER
     Dosage: 135 MG ON 16-APR-2012, 105 MG ON 07-MAY-2012 AND 29-MAY-2012,
     Dates: start: 20120416, end: 20140612
  6. PARAPLATIN [Suspect]
     Active Substance: CARBOPLATIN
     Indication: BREAST CANCER
     Dosage: EVERY THREE WEEKS
     Dates: start: 20120416, end: 20140612
  7. TRASTUZUMAB. [Suspect]
     Active Substance: TRASTUZUMAB
     Indication: BREAST CANCER
     Dosage: EVERY THREE WEEKS
     Dates: start: 20120416, end: 20140612
  8. LORTAB [Concomitant]
     Active Substance: ACETAMINOPHEN\HYDROCODONE BITARTRATE
  9. ATIVAN [Concomitant]
     Active Substance: LORAZEPAM
  10. MOTRIN [Concomitant]
     Active Substance: IBUPROFEN
  11. VARENICLINE/VARENICLINE TARTRATE [Concomitant]

REACTIONS (1)
  - Alopecia [Not Recovered/Not Resolved]

NARRATIVE: CASE EVENT DATE: 201212
